FAERS Safety Report 5046095-6 (Version None)
Quarter: 2006Q3

REPORT INFORMATION
  Report Type: 
  Country: None (occurrence: None)
  Receive Date: 20060710
  Receipt Date: 20060629
  Transmission Date: 20061208
  Serious: Yes (Hospitalization, Other)
  Sender: FDA-Public Use
  Company Number: US-JNJFOC-20060606710

PATIENT
  Sex: Female

DRUGS (7)
  1. REMICADE [Suspect]
     Indication: RHEUMATOID ARTHRITIS
     Route: 042
  2. NORVASC [Concomitant]
  3. METHOTREXATE [Concomitant]
  4. NEXIUM [Concomitant]
  5. CLONAZEPAM [Concomitant]
  6. PROPRANOLOL [Concomitant]
  7. STUDY MEDICATION. [Concomitant]

REACTIONS (2)
  - NEPHROLITHIASIS [None]
  - SKIN CANCER [None]
